FAERS Safety Report 7473541-0 (Version None)
Quarter: 2011Q2

REPORT INFORMATION
  Report Type: 
  Country: None (occurrence: None)
  Receive Date: 20110511
  Receipt Date: 20110506
  Transmission Date: 20111010
  Serious: Yes (Life-Threatening, Hospitalization, Disabling)
  Sender: FDA-Public Use
  Company Number: GB-MERCK-1105GBR00023

PATIENT
  Age: 87 Year
  Sex: Male

DRUGS (13)
  1. RIFAMPIN [Concomitant]
     Indication: TUBERCULOSIS
     Route: 065
  2. ZOCOR [Suspect]
     Indication: CARDIAC FAILURE
     Route: 048
  3. HYDROXOCOBALAMIN [Concomitant]
     Indication: VITAMIN B12 DEFICIENCY
     Route: 065
  4. ISONIAZID [Concomitant]
     Indication: TUBERCULOSIS
     Route: 065
  5. PYRAZINAMIDE [Concomitant]
     Indication: TUBERCULOSIS
     Route: 065
  6. SENNA [Concomitant]
     Indication: CONSTIPATION
     Route: 048
  7. ZOCOR [Suspect]
     Indication: MYOCARDIAL ISCHAEMIA
     Route: 048
  8. RAMIPRIL [Concomitant]
     Indication: CARDIAC FAILURE
     Route: 048
  9. BISOPROLOL [Concomitant]
     Indication: CARDIAC FAILURE
     Route: 048
  10. FUROSEMIDE [Concomitant]
     Indication: CARDIAC FAILURE
     Route: 048
  11. CITALOPRAM [Concomitant]
     Indication: DEPRESSION
     Route: 048
  12. CARBOHYDRATES (UNSPECIFIED) AND FAT (UNSPECIFIED) AND MINERALS (UNSPEC [Concomitant]
     Indication: NUTRITIONAL SUPPORT
     Route: 065
  13. OMEPRAZOLE [Concomitant]
     Route: 048

REACTIONS (4)
  - DYSPNOEA [None]
  - PULMONARY FIBROSIS [None]
  - COUGH [None]
  - WEIGHT DECREASED [None]
